FAERS Safety Report 4372405-9 (Version None)
Quarter: 2004Q2

REPORT INFORMATION
  Report Type: 
  Country: None (occurrence: None)
  Receive Date: 20040526
  Receipt Date: 20031014
  Transmission Date: 20050107
  Serious: Yes (Hospitalization)
  Sender: FDA-Public Use
  Company Number: BE-JNJFOC-20031003317

PATIENT
  Sex: Male

DRUGS (5)
  1. PREPULSID (CISAPRIDE) SUSPENSION [Suspect]
     Indication: GASTROOESOPHAGEAL REFLUX DISEASE
     Dosage: 0.6 MG, 4 IN 1 DAY, UNKNOWN
     Dates: start: 20030114
  2. BICLAR (CLARITHROMYCIN) [Concomitant]
  3. TINSET (OXATOMIDE) [Concomitant]
  4. EUCALYPTINE (EUCALYPTINE LE BRUN SUPPOSITOIRES) [Concomitant]
  5. LYSOX (ACETYLCYSTEINE) [Concomitant]

REACTIONS (3)
  - ELECTROCARDIOGRAM QT CORRECTED INTERVAL PROLONGED [None]
  - PHARYNGITIS [None]
  - TACHYCARDIA [None]
